FAERS Safety Report 6207340-4 (Version None)
Quarter: 2009Q2

REPORT INFORMATION
  Report Type: 
  Country: None (occurrence: None)
  Receive Date: 20090527
  Receipt Date: 20090527
  Transmission Date: 20091009
  Serious: Yes (Life-Threatening)
  Sender: FDA-Public Use
  Company Number: None

PATIENT
  Age: 73 Year
  Sex: Male
  Weight: 97.3 kg

DRUGS (1)
  1. PHYTONADIONE [Suspect]
     Dosage: 10 MG ONCE IV
     Route: 042
     Dates: start: 20090523, end: 20090523

REACTIONS (2)
  - ANAPHYLACTIC REACTION [None]
  - DEPRESSED LEVEL OF CONSCIOUSNESS [None]
